FAERS Safety Report 15759848 (Version 5)
Quarter: 2019Q3

REPORT INFORMATION
  Report Type: Spontaneous
  Country: JP (occurrence: JP)
  Receive Date: 20181226
  Receipt Date: 20190807
  Transmission Date: 20191004
  Serious: Yes (Hospitalization, Other)
  Sender: FDA-Public Use
  Company Number: JP-ASTELLAS-2018JP024240

PATIENT
  Age: 73 Year
  Sex: Female
  Weight: 48 kg

DRUGS (162)
  1. SYMMETREL [Concomitant]
     Active Substance: AMANTADINE HYDROCHLORIDE
     Indication: PRODUCT USED FOR UNKNOWN INDICATION
     Dosage: 25 MG, TWICE DAILY, AFTER BREAKFAST AND SUPPER, 14 DAYS
     Route: 048
     Dates: start: 20180208, end: 20180320
  2. ADALAT [Concomitant]
     Active Substance: NIFEDIPINE
     Indication: PRODUCT USED FOR UNKNOWN INDICATION
     Dosage: 20 MG, TWICE DAILY, AFTER BREAKFAST AND SUPPER
     Route: 048
     Dates: start: 20150827, end: 20151209
  3. ADALAT [Concomitant]
     Active Substance: NIFEDIPINE
     Dosage: 20 MG, ONCE DAILY, AFTER SUPPER
     Route: 048
     Dates: start: 20160609, end: 20170301
  4. ADALAT [Concomitant]
     Active Substance: NIFEDIPINE
     Route: 048
     Dates: start: 20180301, end: 20180708
  5. VOLTAREN [Concomitant]
     Active Substance: DICLOFENAC SODIUM
     Route: 065
     Dates: start: 20180510
  6. LOCOID [Concomitant]
     Active Substance: HYDROCORTISONE BUTYRATE
     Indication: PRODUCT USED FOR UNKNOWN INDICATION
     Route: 050
     Dates: start: 20151006
  7. SATOSALBE [Concomitant]
     Active Substance: ZINC OXIDE
     Indication: PRODUCT USED FOR UNKNOWN INDICATION
     Route: 050
     Dates: start: 20151006
  8. LOXONIN [Concomitant]
     Active Substance: LOXOPROFEN SODIUM
     Dosage: ONE PIECE, ONCE DAILY
     Route: 050
     Dates: start: 20181022
  9. NAUZELIN [Concomitant]
     Active Substance: DOMPERIDONE
     Indication: NAUSEA
     Dosage: 60 MG, UNKNOWN FREQ
     Route: 065
     Dates: start: 20151105, end: 20151124
  10. ADALAT [Concomitant]
     Active Substance: NIFEDIPINE
     Dosage: 40 MG, ONCE DAILY, AFTER BREAKFAST AND SUPPER
     Route: 048
     Dates: start: 20160512, end: 20180213
  11. TAKECAB [Concomitant]
     Active Substance: VONOPRAZAN FUMURATE
     Indication: PRODUCT USED FOR UNKNOWN INDICATION
     Dosage: 10 MG, ONCE DAILY, AFTER BREAKFAST
     Route: 065
     Dates: start: 20160512, end: 20180113
  12. BELSOMRA [Concomitant]
     Active Substance: SUVOREXANT
     Indication: PRODUCT USED FOR UNKNOWN INDICATION
     Dosage: 20 MG, ONCE DAILY, BEFORE SLEEPING
     Route: 065
     Dates: start: 20160205, end: 20160217
  13. MARZULENE S [Concomitant]
     Active Substance: GLUTAMINE\SODIUM GUALENATE
     Indication: PRODUCT USED FOR UNKNOWN INDICATION
     Dosage: UNK UNK, THRICE DAILY, AFTER EACH MEAL
     Route: 065
     Dates: start: 20160201, end: 20160204
  14. AZILVA [Concomitant]
     Active Substance: AZILSARTAN KAMEDOXOMIL
     Dosage: 20 MG, ONCE DAILY, AFTER BREAKFAST
     Route: 065
     Dates: start: 20170605, end: 20180111
  15. NAUZELIN [Concomitant]
     Active Substance: DOMPERIDONE
     Indication: NAUSEA
     Route: 065
     Dates: start: 20171205
  16. ADALAT [Concomitant]
     Active Substance: NIFEDIPINE
     Route: 065
     Dates: start: 20181015
  17. BETANIS [Suspect]
     Active Substance: MIRABEGRON
     Indication: POLLAKIURIA
     Dosage: 50 MG, ONCE DAILY, AFTER BREAKFAST
     Route: 048
     Dates: start: 20150827, end: 20181130
  18. MYSLEE [Concomitant]
     Active Substance: ZOLPIDEM TARTRATE
     Dosage: 5 MG, ONCE DAILY, BEFORE SLEEPING
     Route: 048
     Dates: start: 20181014, end: 20181124
  19. DOGMATYL [Concomitant]
     Active Substance: SULPIRIDE
     Dosage: 25 MG, TWICE DAILY, AFTER BREAKFAST AND SUPPER, 14 DAYS
     Route: 048
     Dates: start: 20181122, end: 20181205
  20. NASONEX [Concomitant]
     Active Substance: MOMETASONE FUROATE
     Route: 045
     Dates: start: 20180129
  21. NASONEX [Concomitant]
     Active Substance: MOMETASONE FUROATE
     Route: 045
     Dates: start: 20181109
  22. SYMMETREL [Concomitant]
     Active Substance: AMANTADINE HYDROCHLORIDE
     Dosage: 25 MG, TWICE DAILY, AFTER BREAKFAST AND SUPPER, 14 DAYS
     Route: 048
     Dates: start: 20181122, end: 20181205
  23. SENNA [Concomitant]
     Active Substance: SENNA LEAF\SENNOSIDES\SENNOSIDES A AND B
     Dosage: 0.5 G, ONCE DAILY, AFTER BREAKFAST
     Route: 048
     Dates: start: 20160512, end: 20170125
  24. RIZE                               /00624801/ [Concomitant]
     Active Substance: CLOTIAZEPAM
     Dosage: UNK UNK, THRICE DAILY, AFTER EACH MEAL
     Route: 048
     Dates: start: 20151105, end: 20151204
  25. RIZE                               /00624801/ [Concomitant]
     Active Substance: CLOTIAZEPAM
     Dosage: 5 MG, THRICE DAILY
     Route: 048
     Dates: start: 20180122, end: 20180124
  26. ENSURE [Concomitant]
     Active Substance: AMINO ACIDS\DEXTROSE\ELECTROLYTES NOS\SOYBEAN OIL\VITAMINS
     Dosage: 1 TUBE, ONCE DAILY, AFTER BREAKFAST
     Route: 048
     Dates: start: 20151210, end: 20151219
  27. LOXONIN [Concomitant]
     Active Substance: LOXOPROFEN SODIUM
     Dosage: 3 PIECES, ONCE DAILY
     Route: 050
     Dates: start: 20160512
  28. LOXONIN [Concomitant]
     Active Substance: LOXOPROFEN SODIUM
     Dosage: ONE PIECE, ONCE DAILY
     Route: 050
     Dates: start: 20170803
  29. LOXONIN [Concomitant]
     Active Substance: LOXOPROFEN SODIUM
     Dosage: ONE PIECE, ONCE DAILY
     Route: 050
     Dates: start: 20180124
  30. LOXONIN [Concomitant]
     Active Substance: LOXOPROFEN SODIUM
     Dosage: ONE PIECE, ONCE DAILY
     Route: 050
     Dates: start: 20180405
  31. ADALAT [Concomitant]
     Active Substance: NIFEDIPINE
     Indication: PRODUCT USED FOR UNKNOWN INDICATION
     Dosage: 40 MG, ONCE DAILY, AFTER BREAKFAST
     Route: 065
     Dates: start: 20160128, end: 20160406
  32. LASIX [Concomitant]
     Active Substance: FUROSEMIDE
     Dosage: 20 MG, ONCE DAILY, AFTER BREAKFAST
     Route: 065
     Dates: start: 20160512, end: 20180114
  33. BELSOMRA [Concomitant]
     Active Substance: SUVOREXANT
     Indication: PRODUCT USED FOR UNKNOWN INDICATION
     Dosage: 20 MG, ONCE DAILY, BEFORE SLEEPING
     Route: 065
     Dates: start: 20160310, end: 20160323
  34. FEBURIC [Concomitant]
     Active Substance: FEBUXOSTAT
     Indication: PRODUCT USED FOR UNKNOWN INDICATION
     Dosage: 10 UNK, ONCE DAILY, AFTER BREAKFAST
     Route: 065
     Dates: start: 20161117, end: 20180119
  35. MIYA-BM [Concomitant]
     Active Substance: CLOSTRIDIUM BUTYRICUM SPORES STRAIN M-55
     Indication: PRODUCT USED FOR UNKNOWN INDICATION
     Route: 065
     Dates: start: 20171008, end: 20171009
  36. NORMAL SALINE [Concomitant]
     Active Substance: SODIUM CHLORIDE
     Dosage: 1 G, THRICE DAILY, AFTER EACH MEAL
     Route: 065
     Dates: start: 20171124, end: 20171130
  37. GLUCONSAN K [Concomitant]
     Active Substance: POTASSIUM GLUCONATE
     Indication: PRODUCT USED FOR UNKNOWN INDICATION
     Dosage: 2 G, THRICE DAILY, AFTER EACH MEAL
     Route: 065
     Dates: start: 20171023, end: 20171027
  38. NAUZELIN [Concomitant]
     Active Substance: DOMPERIDONE
     Route: 065
     Dates: start: 20180122
  39. ADALAT [Concomitant]
     Active Substance: NIFEDIPINE
     Route: 065
     Dates: start: 20180301
  40. ADALAT [Concomitant]
     Active Substance: NIFEDIPINE
     Route: 065
     Dates: start: 20180405
  41. MERISLON [Concomitant]
     Active Substance: BETAHISTINE MESILATE
     Route: 048
     Dates: start: 20170828, end: 20170924
  42. NASONEX [Concomitant]
     Active Substance: MOMETASONE FUROATE
     Route: 045
     Dates: start: 20181023
  43. CONSTAN                            /00595201/ [Concomitant]
     Active Substance: ALPRAZOLAM
     Indication: IRRITABILITY
     Dosage: 0.2 MG, THRICE DAILY, AFTER EACH MEAL, 14 DAYS
     Route: 048
     Dates: start: 20180208, end: 20180221
  44. ADETPHOS [Concomitant]
     Active Substance: ADENOSINE TRIPHOSPHATE
     Indication: PRODUCT USED FOR UNKNOWN INDICATION
     Dosage: 1 G, THRICE DAILY, AFTER EACH MEAL
     Route: 048
     Dates: start: 20151204, end: 20160108
  45. FLUITRAN [Concomitant]
     Active Substance: TRICHLORMETHIAZIDE
     Dosage: 2 MG, ONCE DAILY, AFTER BREAKFAST
     Route: 048
     Dates: start: 20180426, end: 20181205
  46. MAINTATE [Concomitant]
     Active Substance: BISOPROLOL FUMARATE
     Dosage: 5 MG, ONCE DAILY, AFTER BREAKFAST
     Route: 048
     Dates: start: 20180308
  47. ENSURE [Concomitant]
     Active Substance: AMINO ACIDS\DEXTROSE\ELECTROLYTES NOS\SOYBEAN OIL\VITAMINS
     Indication: PRODUCT USED FOR UNKNOWN INDICATION
     Dosage: 1 TUBE, ONCE DAILY, AFTER BREAKFAST
     Route: 048
     Dates: start: 20150827, end: 20151014
  48. KAMISHOYOSAN                       /07987101/ [Concomitant]
     Active Substance: HERBALS
     Indication: PRODUCT USED FOR UNKNOWN INDICATION
     Dosage: 1 PACK, THRICE DAILY, AFTER EACH MEAL
     Route: 065
     Dates: start: 20150827, end: 20160406
  49. DEPAS [Concomitant]
     Dosage: 0.5 DF, ONCE DAILY
     Route: 065
     Dates: start: 20180126, end: 20180228
  50. DEPAS [Concomitant]
     Dosage: 0.5 DF, ONCE DAILY
     Route: 065
     Dates: start: 20180301, end: 20180708
  51. LOXONIN [Concomitant]
     Active Substance: LOXOPROFEN SODIUM
     Dosage: 60 MG, ONCE DAILY,HURT
     Route: 065
     Dates: start: 20160211, end: 20160301
  52. PRIMPERAN [Concomitant]
     Active Substance: METOCLOPRAMIDE HYDROCHLORIDE
     Route: 048
     Dates: start: 20171008, end: 20171010
  53. TAKEPRON [Concomitant]
     Active Substance: LANSOPRAZOLE
     Dosage: 30 MG, ONCE DAILY, AFTER BREAKFAST
     Route: 048
     Dates: start: 20151210, end: 20160309
  54. VOLTAREN [Concomitant]
     Active Substance: DICLOFENAC SODIUM
     Route: 065
     Dates: start: 20171102
  55. ISOBIDE                            /00586301/ [Concomitant]
     Active Substance: ISOSORBIDE
     Indication: PRODUCT USED FOR UNKNOWN INDICATION
     Dosage: 30 ML, THRICE DAILY, AFTER EACH MEA
     Route: 048
     Dates: start: 20151204, end: 20160108
  56. BUSCOPAN [Concomitant]
     Active Substance: BUTYLSCOPOLAMINE BROMIDE
     Indication: PRODUCT USED FOR UNKNOWN INDICATION
     Dosage: 10 MG, ONCE DAILY, STOMACHACHE
     Route: 065
     Dates: start: 20160203, end: 20160212
  57. ADALAT [Concomitant]
     Active Substance: NIFEDIPINE
     Route: 065
     Dates: start: 20180426
  58. NAUZELIN [Concomitant]
     Active Substance: DOMPERIDONE
     Indication: NAUSEA
     Route: 065
     Dates: start: 20181029, end: 20181115
  59. MYSLEE [Concomitant]
     Active Substance: ZOLPIDEM TARTRATE
     Route: 048
     Dates: start: 20170901, end: 20171010
  60. MERISLON [Concomitant]
     Active Substance: BETAHISTINE MESILATE
     Dosage: 6 MG, THRICE DAILY, AFTER EACH MEAL
     Route: 048
     Dates: start: 20171222, end: 20180120
  61. NASONEX [Concomitant]
     Active Substance: MOMETASONE FUROATE
     Route: 045
     Dates: start: 20171120
  62. RIZE                               /00624801/ [Concomitant]
     Active Substance: CLOTIAZEPAM
     Dosage: UNK UNK, THRICE DAILY, AFTER EACH MEAL
     Route: 048
     Dates: start: 20160128, end: 20160226
  63. ENSURE [Concomitant]
     Active Substance: AMINO ACIDS\DEXTROSE\ELECTROLYTES NOS\SOYBEAN OIL\VITAMINS
     Dosage: 1 UNK, ONCE DAILY
     Route: 048
     Dates: start: 20151105, end: 20151121
  64. ENSURE [Concomitant]
     Active Substance: AMINO ACIDS\DEXTROSE\ELECTROLYTES NOS\SOYBEAN OIL\VITAMINS
     Dosage: 1 UNK, ONCE DAILY
     Route: 048
     Dates: start: 20160128, end: 20160309
  65. DEPAS [Concomitant]
     Dosage: 0.5 DF, THRICE DAILY
     Route: 048
     Dates: start: 20150929, end: 20160120
  66. VOLTAREN [Concomitant]
     Active Substance: DICLOFENAC SODIUM
     Route: 065
     Dates: start: 20160901
  67. LOXONIN [Concomitant]
     Active Substance: LOXOPROFEN SODIUM
     Dosage: ONE PIECE, ONCE DAILY
     Route: 050
     Dates: start: 20160721
  68. TSUMURA CHOREITO [Concomitant]
     Indication: PRODUCT USED FOR UNKNOWN INDICATION
     Dosage: 1 PACK, THRICE DAILY, BEFORE EACH MEAL
     Route: 065
     Dates: start: 20160721, end: 20160928
  69. TSUMURA CHOREITO [Concomitant]
     Dosage: 1 PACK, THRICE DAILY, BEFORE EACH MEAL
     Route: 065
     Dates: start: 20161006, end: 20161109
  70. MIYA-BM [Concomitant]
     Active Substance: CLOSTRIDIUM BUTYRICUM SPORES STRAIN M-55
     Route: 065
     Dates: start: 20181105, end: 20181125
  71. NORMAL SALINE [Concomitant]
     Active Substance: SODIUM CHLORIDE
     Indication: PRODUCT USED FOR UNKNOWN INDICATION
     Dosage: 1 G, THRICE DAILY, AFTER EACH MEAL
     Route: 065
     Dates: start: 20171018, end: 20171022
  72. ADALAT [Concomitant]
     Active Substance: NIFEDIPINE
     Route: 065
     Dates: start: 20180122
  73. MYSLEE [Concomitant]
     Active Substance: ZOLPIDEM TARTRATE
     Route: 048
     Dates: start: 20171019, end: 20180103
  74. DOGMATYL [Concomitant]
     Active Substance: SULPIRIDE
     Indication: PRODUCT USED FOR UNKNOWN INDICATION
     Dosage: 25 MG, TWICE DAILY, AFTER BREAKFAST AND SUPPER, 14 DAYS
     Route: 048
     Dates: start: 20180208, end: 20180320
  75. MERISLON [Concomitant]
     Active Substance: BETAHISTINE MESILATE
     Route: 048
     Dates: start: 20171014, end: 20171219
  76. NASONEX [Concomitant]
     Active Substance: MOMETASONE FUROATE
     Route: 045
     Dates: start: 20171020
  77. CONSTAN                            /00595201/ [Concomitant]
     Active Substance: ALPRAZOLAM
     Dosage: 0.2 MG, THRICE DAILY, AFTER EACH MEAL, 14 DAYS
     Route: 048
     Dates: start: 20180208, end: 20180320
  78. DIOVAN [Concomitant]
     Active Substance: VALSARTAN
     Indication: PRODUCT USED FOR UNKNOWN INDICATION
     Dosage: 80 MG, TWICE DAILY, AFTER BREAKFAST AND SUPPER
     Route: 048
     Dates: start: 20150827, end: 20160406
  79. RIZE                               /00624801/ [Concomitant]
     Active Substance: CLOTIAZEPAM
     Dosage: UNK UNK, THRICE DAILY, AFTER EACH MEAL
     Route: 048
     Dates: start: 20151210, end: 20160108
  80. RIZE                               /00624801/ [Concomitant]
     Active Substance: CLOTIAZEPAM
     Dosage: 5 MG, THRICE DAILY
     Route: 048
     Dates: start: 20181112, end: 20181121
  81. DEPAS [Concomitant]
     Indication: ANXIETY
     Dosage: 0.5 DF, THRICE DAILY
     Route: 065
     Dates: start: 20150915, end: 20150925
  82. DEPAS [Concomitant]
     Dosage: 0.5 DF, THRICE DAILY
     Route: 065
     Dates: start: 20180712, end: 20181022
  83. VOLTAREN [Concomitant]
     Active Substance: DICLOFENAC SODIUM
     Indication: PRODUCT USED FOR UNKNOWN INDICATION
     Route: 065
     Dates: start: 20150915
  84. LOXONIN [Concomitant]
     Active Substance: LOXOPROFEN SODIUM
     Dosage: ONE PIECE, ONCE DAILY
     Route: 050
     Dates: start: 20180510
  85. TAKECAB [Concomitant]
     Active Substance: VONOPRAZAN FUMURATE
     Indication: PRODUCT USED FOR UNKNOWN INDICATION
     Dosage: 20 MG, ONCE DAILY, AFTER BREAKFAST
     Route: 065
     Dates: start: 20160310, end: 20160406
  86. BELSOMRA [Concomitant]
     Active Substance: SUVOREXANT
     Route: 065
     Dates: start: 20161222, end: 20170120
  87. TRAVELMIN                          /00141802/ [Concomitant]
     Route: 065
     Dates: start: 20170911, end: 20170920
  88. LAC-B [Concomitant]
     Active Substance: BIFIDOBACTERIUM SPP.
     Indication: PRODUCT USED FOR UNKNOWN INDICATION
     Dosage: 1 G, THRICE DAILY, AFTER EACH MEAL
     Route: 065
     Dates: start: 20160201, end: 20160204
  89. LAC-B [Concomitant]
     Active Substance: BIFIDOBACTERIUM SPP.
     Dosage: 1 G, THRICE DAILY, AFTER EACH MEAL
     Route: 065
     Dates: start: 20161222, end: 20170301
  90. ERYTHROCIN                         /00020901/ [Concomitant]
     Active Substance: ERYTHROMYCIN ETHYLSUCCINATE
     Indication: PRODUCT USED FOR UNKNOWN INDICATION
     Dosage: 200 MG, THRICE DAILY, AFTER EACH MEAL
     Route: 065
     Dates: start: 20160201, end: 20160204
  91. METGLUCO [Concomitant]
     Active Substance: METFORMIN HYDROCHLORIDE
     Dosage: 250 MG, TWICE DAILY, AFTER BREAKFAST
     Route: 065
     Dates: start: 20170413, end: 20180119
  92. AZILVA [Concomitant]
     Active Substance: AZILSARTAN KAMEDOXOMIL
     Indication: PRODUCT USED FOR UNKNOWN INDICATION
     Dosage: 20 MG, TWICE DAILY, AFTER BREAKFAST AND SUPPER
     Route: 065
     Dates: start: 20170126, end: 20170604
  93. EPADEL-S [Concomitant]
     Active Substance: ICOSAPENT ETHYL
     Indication: PRODUCT USED FOR UNKNOWN INDICATION
     Dosage: 1 PACK, TWICE DAILY
     Route: 065
     Dates: start: 20170605, end: 20171127
  94. GLUCONSAN K [Concomitant]
     Active Substance: POTASSIUM GLUCONATE
     Dosage: 2 G, THRICE DAILY, AFTER EACH MEAL
     Route: 065
     Dates: start: 20171201, end: 20180524
  95. GLUCONSAN K [Concomitant]
     Active Substance: POTASSIUM GLUCONATE
     Dosage: 2 G, THRICE DAILY, AFTER EACH MEAL
     Route: 065
     Dates: start: 20180712, end: 20181205
  96. FLORINEF ACETATE [Concomitant]
     Active Substance: FLUDROCORTISONE ACETATE
     Indication: PRODUCT USED FOR UNKNOWN INDICATION
     Dosage: 0.5 DF, TWICE DAILY, AFTER BREAKFAST AND LUNCH
     Route: 065
     Dates: start: 20171120, end: 20171128
  97. ADALAT [Concomitant]
     Active Substance: NIFEDIPINE
     Route: 065
     Dates: start: 20180702
  98. MYSLEE [Concomitant]
     Active Substance: ZOLPIDEM TARTRATE
     Route: 048
     Dates: start: 20180111, end: 20180929
  99. MERISLON [Concomitant]
     Active Substance: BETAHISTINE MESILATE
     Indication: PRODUCT USED FOR UNKNOWN INDICATION
     Dosage: 6 MG, THRICE DAILY, AFTER EACH MEAL
     Route: 048
     Dates: start: 20151204, end: 20160108
  100. MERISLON [Concomitant]
     Active Substance: BETAHISTINE MESILATE
     Dosage: 6 MG, THRICE DAILY, AFTER EACH MEAL
     Route: 048
     Dates: start: 20180608, end: 20180705
  101. NASONEX [Concomitant]
     Active Substance: MOMETASONE FUROATE
     Indication: PRODUCT USED FOR UNKNOWN INDICATION
     Route: 045
     Dates: start: 20170901
  102. NASONEX [Concomitant]
     Active Substance: MOMETASONE FUROATE
     Route: 045
     Dates: start: 20171222
  103. NASONEX [Concomitant]
     Active Substance: MOMETASONE FUROATE
     Route: 045
     Dates: start: 20180427
  104. RIVOTRIL [Concomitant]
     Active Substance: CLONAZEPAM
     Indication: PRODUCT USED FOR UNKNOWN INDICATION
     Dosage: 0.5 MG, ONCE DAILY, BEFORE SLEEPING, 14 DAYS
     Route: 048
     Dates: start: 20180208, end: 20180320
  105. ADALAT [Concomitant]
     Active Substance: NIFEDIPINE
     Route: 048
     Dates: start: 20151210, end: 20160406
  106. RIZE                               /00624801/ [Concomitant]
     Active Substance: CLOTIAZEPAM
     Dosage: UNK UNK, THRICE DAILY, AFTER EACH MEAL
     Route: 048
     Dates: start: 20160310, end: 20160406
  107. RIZE                               /00624801/ [Concomitant]
     Active Substance: CLOTIAZEPAM
     Dosage: UNK UNK, THRICE DAILY
     Route: 048
     Dates: start: 20170413, end: 20170604
  108. RIZE                               /00624801/ [Concomitant]
     Active Substance: CLOTIAZEPAM
     Route: 048
     Dates: start: 20171005, end: 20171103
  109. HANGEKOBOKUTO [Concomitant]
     Active Substance: HERBALS
     Indication: PRODUCT USED FOR UNKNOWN INDICATION
     Dosage: 1 PACK, THRICE DAILY, BEFORE EACH MEAL
     Route: 065
     Dates: start: 20150827, end: 20160406
  110. TRAMCET [Concomitant]
     Active Substance: ACETAMINOPHEN\TRAMADOL
     Dosage: UNK UNK, THRICE DAILY, AFTER EACH MEAL
     Route: 048
     Dates: start: 20150929, end: 20151012
  111. MUCOSTA [Concomitant]
     Active Substance: REBAMIPIDE
     Indication: PRODUCT USED FOR UNKNOWN INDICATION
     Dosage: 100 MG, THRICE DAILY, AFTER EACH MEAL
     Route: 065
     Dates: start: 20150915, end: 20150925
  112. LOXONIN [Concomitant]
     Active Substance: LOXOPROFEN SODIUM
     Indication: PRODUCT USED FOR UNKNOWN INDICATION
     Dosage: UNK UNK, ONCE DAILY
     Route: 050
     Dates: start: 20151013
  113. LOXONIN [Concomitant]
     Active Substance: LOXOPROFEN SODIUM
     Dosage: ONE PIECE, ONCE DAILY, ONCE DAILY
     Route: 050
     Dates: start: 20161006
  114. LOXONIN [Concomitant]
     Active Substance: LOXOPROFEN SODIUM
     Dosage: ONE PIECE, ONCE DAILY
     Route: 050
     Dates: start: 20161201
  115. LOXONIN [Concomitant]
     Active Substance: LOXOPROFEN SODIUM
     Dosage: ONE PIECE, ONCE DAILY
     Route: 050
     Dates: start: 20180719
  116. BELSOMRA [Concomitant]
     Active Substance: SUVOREXANT
     Indication: PRODUCT USED FOR UNKNOWN INDICATION
     Dosage: 15 MG, ONCE DAILY, BEFORE SLEEPING
     Route: 065
     Dates: start: 20160609, end: 20160803
  117. FLORINEF ACETATE [Concomitant]
     Active Substance: FLUDROCORTISONE ACETATE
     Dosage: 0.5 DF, TWICE DAILY, AFTER BREAKFAST AND LUNCH
     Route: 065
     Dates: start: 20171201, end: 20181205
  118. MYSLEE [Concomitant]
     Active Substance: ZOLPIDEM TARTRATE
     Indication: PRODUCT USED FOR UNKNOWN INDICATION
     Dosage: 5 MG, ONCE DAILY, BEFORE SLEEPING
     Route: 048
     Dates: start: 20151211, end: 20151220
  119. MERISLON [Concomitant]
     Active Substance: BETAHISTINE MESILATE
     Dosage: 6 MG, THRICE DAILY, AFTER EACH MEAL
     Route: 048
     Dates: start: 20181023, end: 20181029
  120. CONSTAN                            /00595201/ [Concomitant]
     Active Substance: ALPRAZOLAM
     Indication: RESTLESSNESS
     Dosage: UNK UNK, AS NEEDED
     Route: 048
     Dates: start: 20180208
  121. CONSTAN                            /00595201/ [Concomitant]
     Active Substance: ALPRAZOLAM
     Indication: ANXIETY
     Dosage: UNK UNK, AS NEEDED
     Route: 048
     Dates: start: 20180208
  122. ADETPHOS [Concomitant]
     Active Substance: ADENOSINE TRIPHOSPHATE
     Dosage: 1 G, THRICE DAILY, AFTER EACH MEAL, 14 DAYS
     Route: 048
     Dates: start: 20180608, end: 20180705
  123. ADETPHOS [Concomitant]
     Active Substance: ADENOSINE TRIPHOSPHATE
     Dosage: 1 G, THRICE DAILY, AFTER EACH MEAL, 14 DAYS
     Route: 048
     Dates: start: 20181023, end: 20181029
  124. FLUITRAN [Concomitant]
     Active Substance: TRICHLORMETHIAZIDE
     Indication: PRODUCT USED FOR UNKNOWN INDICATION
     Route: 048
     Dates: start: 20150827, end: 20160406
  125. FLUITRAN [Concomitant]
     Active Substance: TRICHLORMETHIAZIDE
     Dosage: 2 MG, ONCE DAILY, AFTER BREAKFAST
     Route: 048
     Dates: start: 20160512, end: 20170125
  126. FLUITRAN [Concomitant]
     Active Substance: TRICHLORMETHIAZIDE
     Dosage: 2 MG, ONCE DAILY, AFTER BREAKFAST
     Route: 048
     Dates: start: 20170126, end: 20180113
  127. ADALAT [Concomitant]
     Active Substance: NIFEDIPINE
     Route: 048
     Dates: start: 20170413, end: 20170604
  128. ADALAT [Concomitant]
     Active Substance: NIFEDIPINE
     Route: 048
     Dates: start: 20180712, end: 20181017
  129. ADALAT [Concomitant]
     Active Substance: NIFEDIPINE
     Route: 048
     Dates: start: 20181025, end: 20181205
  130. SENNA [Concomitant]
     Active Substance: SENNA LEAF\SENNOSIDES\SENNOSIDES A AND B
     Indication: PRODUCT USED FOR UNKNOWN INDICATION
     Dosage: 0.5 G, ONCE DAILY, AFTER BREAKFAST
     Route: 048
     Dates: start: 20150827, end: 20160406
  131. MAINTATE [Concomitant]
     Active Substance: BISOPROLOL FUMARATE
     Indication: PRODUCT USED FOR UNKNOWN INDICATION
     Dosage: 5 MG, ONCE DAILY, AFTER BREAKFAST
     Route: 048
     Dates: start: 20150827, end: 20160406
  132. MAINTATE [Concomitant]
     Active Substance: BISOPROLOL FUMARATE
     Dosage: 5 MG, ONCE DAILY, AFTER BREAKFAST
     Route: 048
     Dates: start: 20160512, end: 20170125
  133. RIZE                               /00624801/ [Concomitant]
     Active Substance: CLOTIAZEPAM
     Indication: ANXIETY
     Dosage: UNK UNK, THRICE DAILY, AFTER EACH MEAL
     Route: 048
     Dates: start: 20150827, end: 20151023
  134. LOXONIN [Concomitant]
     Active Substance: LOXOPROFEN SODIUM
     Indication: PRODUCT USED FOR UNKNOWN INDICATION
     Dosage: 60MG, THRICE DAILY, AFTER EACH MEAL, 2 DAYS
     Route: 065
     Dates: start: 20150915, end: 20150925
  135. PRIMPERAN [Concomitant]
     Active Substance: METOCLOPRAMIDE HYDROCHLORIDE
     Indication: NAUSEA
     Route: 048
     Dates: start: 20150915, end: 20150925
  136. TAKEPRON [Concomitant]
     Active Substance: LANSOPRAZOLE
     Indication: PRODUCT USED FOR UNKNOWN INDICATION
     Dosage: 30 MG, ONCE DAILY, AFTER BREAKFAST
     Route: 048
     Dates: start: 20150924, end: 20151007
  137. VOLTAREN [Concomitant]
     Active Substance: DICLOFENAC SODIUM
     Route: 065
     Dates: start: 20180621
  138. LYRICA [Concomitant]
     Active Substance: PREGABALIN
     Indication: PRODUCT USED FOR UNKNOWN INDICATION
     Dosage: 50 MG, TWICE DAILY, AFTER BREAKFAST AND SUPPER
     Route: 048
     Dates: start: 20151006, end: 20160120
  139. LOXONIN [Concomitant]
     Active Substance: LOXOPROFEN SODIUM
     Dosage: UNK UNK, ONCE DAILY
     Route: 050
     Dates: start: 20151027
  140. MAGMITT [Concomitant]
     Active Substance: MAGNESIUM OXIDE
     Indication: PRODUCT USED FOR UNKNOWN INDICATION
     Dosage: 250 MG, THRICE DAILY, AFTER EACH MEAL
     Route: 048
     Dates: start: 20151210, end: 20160108
  141. LAC-B [Concomitant]
     Active Substance: BIFIDOBACTERIUM SPP.
     Dosage: 1 G, THRICE DAILY, AFTER EACH MEAL
     Route: 065
     Dates: start: 20170413, end: 20171130
  142. METGLUCO [Concomitant]
     Active Substance: METFORMIN HYDROCHLORIDE
     Indication: PRODUCT USED FOR UNKNOWN INDICATION
     Dosage: 250 MG, ONCE DAILY, AFTER BREAKFAST
     Route: 065
     Dates: start: 20161117, end: 20170301
  143. GLUCONSAN K [Concomitant]
     Active Substance: POTASSIUM GLUCONATE
     Dosage: 2 G, THRICE DAILY, AFTER EACH MEAL
     Route: 065
     Dates: start: 20180702, end: 20180708
  144. NAUZELIN [Concomitant]
     Active Substance: DOMPERIDONE
     Route: 065
     Dates: start: 20180111
  145. ADALAT [Concomitant]
     Active Substance: NIFEDIPINE
     Route: 065
     Dates: start: 20180111
  146. ADALAT [Concomitant]
     Active Substance: NIFEDIPINE
     Route: 065
     Dates: start: 20180524
  147. MERISLON [Concomitant]
     Active Substance: BETAHISTINE MESILATE
     Dosage: 6 MG, THRICE DAILY, AFTER EACH MEAL, 14 DAYS
     Route: 048
     Dates: start: 20170712, end: 20170725
  148. MERISLON [Concomitant]
     Active Substance: BETAHISTINE MESILATE
     Dosage: 6 MG, THRICE DAILY, AFTER EACH MEAL
     Route: 048
     Dates: start: 20180122, end: 20180201
  149. RIVOTRIL [Concomitant]
     Active Substance: CLONAZEPAM
     Dosage: 0.5 MG, ONCE DAILY, BEFORE SLEEPING, 14 DAYS
     Route: 048
     Dates: start: 20181122, end: 20181205
  150. DIOVAN [Concomitant]
     Active Substance: VALSARTAN
     Dosage: 80 MG, TWICE DAILY, AFTER BREAKFAST AND SUPPER
     Route: 048
     Dates: start: 20160512, end: 20170125
  151. ADALAT [Concomitant]
     Active Substance: NIFEDIPINE
     Route: 048
     Dates: start: 20170605, end: 20170702
  152. SENNA [Concomitant]
     Active Substance: SENNA LEAF\SENNOSIDES\SENNOSIDES A AND B
     Dosage: 0.5 G, ONCE DAILY, AFTER BREAKFAST
     Route: 048
     Dates: start: 20170126, end: 20180113
  153. MAINTATE [Concomitant]
     Active Substance: BISOPROLOL FUMARATE
     Route: 048
     Dates: start: 20170126, end: 20180113
  154. TRAMCET [Concomitant]
     Active Substance: ACETAMINOPHEN\TRAMADOL
     Indication: PRODUCT USED FOR UNKNOWN INDICATION
     Dosage: UNK UNK, THRICE DAILY, AFTER EACH MEAL
     Route: 065
     Dates: start: 20150915, end: 20150925
  155. PRIMPERAN [Concomitant]
     Active Substance: METOCLOPRAMIDE HYDROCHLORIDE
     Route: 048
     Dates: start: 20171027, end: 20171210
  156. LOXONIN [Concomitant]
     Active Substance: LOXOPROFEN SODIUM
     Dosage: UNK UNK, ONCE DAILY
     Route: 050
     Dates: start: 20151124
  157. LOXONIN [Concomitant]
     Active Substance: LOXOPROFEN SODIUM
     Dosage: UNK UNK, ONCE DAILY
     Route: 050
     Dates: start: 20151222
  158. LASIX [Concomitant]
     Active Substance: FUROSEMIDE
     Indication: PRODUCT USED FOR UNKNOWN INDICATION
     Route: 065
     Dates: start: 20160128, end: 20160406
  159. TRAVELMIN                          /00141802/ [Concomitant]
     Indication: DIZZINESS
     Route: 065
     Dates: start: 20151211, end: 20151220
  160. AZILVA [Concomitant]
     Active Substance: AZILSARTAN KAMEDOXOMIL
     Dosage: 20 MG, ONCE DAILY, AFTER BREAKFAST
     Route: 065
     Dates: start: 20180111, end: 20181205
  161. GLUCONSAN K [Concomitant]
     Active Substance: POTASSIUM GLUCONATE
     Dosage: 2 G, THRICE DAILY, AFTER EACH MEAL
     Route: 065
     Dates: start: 20171120, end: 20171128
  162. ADALAT [Concomitant]
     Active Substance: NIFEDIPINE
     Indication: BLOOD PRESSURE INCREASED
     Route: 065
     Dates: start: 20171205

REACTIONS (29)
  - Gastroenteritis [Recovering/Resolving]
  - Chest discomfort [Recovering/Resolving]
  - Dizziness [Recovering/Resolving]
  - Dysphagia [Unknown]
  - Nausea [Recovered/Resolved]
  - Electrolyte imbalance [Recovering/Resolving]
  - Malaise [Recovering/Resolving]
  - Chest discomfort [Recovered/Resolved]
  - Discomfort [Recovered/Resolved]
  - Anxiety disorder [Not Recovered/Not Resolved]
  - Vomiting [Recovering/Resolving]
  - Nausea [Recovering/Resolving]
  - Dizziness [Recovered/Resolved]
  - Diarrhoea [Recovered/Resolved]
  - Headache [Recovered/Resolved]
  - Chest discomfort [Recovering/Resolving]
  - Diabetes mellitus [Not Recovered/Not Resolved]
  - Headache [Recovered/Resolved]
  - Dizziness [Recovering/Resolving]
  - Decreased appetite [Recovering/Resolving]
  - Dizziness [Recovering/Resolving]
  - Malaise [Recovered/Resolved]
  - Abdominal discomfort [Recovered/Resolved]
  - Malaise [Recovered/Resolved]
  - Meniere^s disease [Recovering/Resolving]
  - Chest discomfort [Recovered/Resolved]
  - Tremor [Recovering/Resolving]
  - Palpitations [Unknown]
  - Hypertension [Recovered/Resolved]

NARRATIVE: CASE EVENT DATE: 2015
